FAERS Safety Report 7079001-3 (Version None)
Quarter: 2010Q4

REPORT INFORMATION
  Report Type: 
  Country: None (occurrence: None)
  Receive Date: 20101102
  Receipt Date: 20101018
  Transmission Date: 20110411
  Serious: Yes (Hospitalization)
  Sender: FDA-Public Use
  Company Number: US-ELI_LILLY_AND_COMPANY-US201009004045

PATIENT
  Sex: Male
  Weight: 85.17 kg

DRUGS (21)
  1. PEMETREXED [Suspect]
     Indication: NON-SMALL CELL LUNG CANCER
     Dosage: 500 MG/M2, OTHER
     Route: 042
     Dates: start: 20100517
  2. CARBOPLATIN [Suspect]
     Indication: NON-SMALL CELL LUNG CANCER
     Dosage: 6 D/F, OTHER
     Route: 042
     Dates: start: 20100517, end: 20100720
  3. BEVACIZUMAB [Suspect]
     Indication: NON-SMALL CELL LUNG CANCER
     Dosage: 15 MG/KG, OTHER
     Route: 042
     Dates: start: 20100517
  4. AMLODIPINE [Concomitant]
     Indication: HYPERTENSION
     Dates: start: 20051221
  5. ASPIRIN [Concomitant]
     Indication: PROPHYLAXIS
     Dosage: UNK, UNK
     Dates: start: 20051221
  6. ISOSORBIDE DINITRATE [Concomitant]
     Indication: CORONARY ARTERY DISEASE
     Dates: start: 20051221
  7. HYDRALAZINE [Concomitant]
     Indication: HYPERTENSION
     Dates: start: 20051221
  8. CENTRUM SILVER [Concomitant]
     Indication: MEDICAL DIET
     Dates: start: 20051221
  9. METOPROLOL [Concomitant]
     Indication: HYPERTENSION
     Dates: start: 20051221
  10. LORAZEPAM [Concomitant]
     Indication: ANXIETY
     Dates: start: 20051221
  11. LEXAPRO [Concomitant]
     Indication: DEPRESSION
     Dates: start: 20100125
  12. VITAMIN D [Concomitant]
     Indication: MEDICAL DIET
     Dates: start: 20051221, end: 20100921
  13. HYDROCODONE [Concomitant]
     Indication: ARTHRALGIA
     Dates: start: 20051221, end: 20100921
  14. NITROLINGUAL [Concomitant]
     Indication: CORONARY ARTERY DISEASE
     Dates: start: 20051221
  15. CLARITIN [Concomitant]
     Indication: SEASONAL ALLERGY
     Dates: start: 20051221
  16. ALEVE (CAPLET) [Concomitant]
     Indication: MUSCULOSKELETAL CHEST PAIN
     Dates: start: 20100823, end: 20100921
  17. ZOFRAN [Concomitant]
     Indication: NAUSEA
     Dates: start: 20100720
  18. MORPHINE [Concomitant]
     Indication: MUSCULOSKELETAL CHEST PAIN
     Dates: start: 20100907
  19. MS CONTIN [Concomitant]
     Indication: MUSCULOSKELETAL CHEST PAIN
     Dates: start: 20100907
  20. MIRALAX [Concomitant]
     Indication: CONSTIPATION
     Dates: start: 20100907
  21. DURAGESIC-100 [Concomitant]
     Indication: MUSCULOSKELETAL CHEST PAIN
     Dates: start: 20100720, end: 20100907

REACTIONS (8)
  - ANAEMIA [None]
  - CAROTID ARTERY STENOSIS [None]
  - CEREBRAL INFARCTION [None]
  - GASTROINTESTINAL HAEMORRHAGE [None]
  - HAEMANGIOMA [None]
  - LEIOMYOMA [None]
  - METASTASIS [None]
  - VERTEBRAL ARTERY STENOSIS [None]
